FAERS Safety Report 9458957 (Version 1)
Quarter: 2013Q3

REPORT INFORMATION
  Report Type: Spontaneous
  Country: DE (occurrence: FR)
  Receive Date: 20130814
  Receipt Date: 20130814
  Transmission Date: 20140515
  Serious: Yes (Hospitalization)
  Sender: FDA-Public Use
  Company Number: FR-FRI-1000047645

PATIENT
  Age: 88 Year
  Sex: Female

DRUGS (4)
  1. MEMANTINE [Suspect]
     Indication: COGNITIVE DISORDER
     Dosage: 2 DF
  2. DUROGESIC [Suspect]
     Indication: TOOTHACHE
     Route: 062
     Dates: start: 201208
  3. REMINYL [Suspect]
  4. ALDACTAZINE [Concomitant]

REACTIONS (2)
  - Renal failure [Recovering/Resolving]
  - Disturbance in attention [Recovered/Resolved]
